FAERS Safety Report 9736288 (Version 2)
Quarter: 2014Q1

REPORT INFORMATION
  Report Type: Report from Study
  Country: JP (occurrence: JP)
  Receive Date: 20131206
  Receipt Date: 20140206
  Transmission Date: 20141002
  Serious: Yes (Death, Other)
  Sender: FDA-Public Use
  Company Number: JP-TAKEDA-2013TJP003444

PATIENT
  Age: 73 Year
  Sex: Male

DRUGS (6)
  1. LANSOPRAZOLE [Suspect]
     Indication: PROPHYLAXIS AGAINST GASTROINTESTINAL ULCER
     Dosage: 15 MG, QD
     Route: 048
     Dates: start: 20110608, end: 20111005
  2. HYPEN                              /00613801/ [Concomitant]
     Indication: CANCER PAIN
     Dosage: 400 MG, 1DAYS
     Route: 048
     Dates: start: 20110316
  3. DECADRON                           /00016001/ [Concomitant]
     Dosage: 1 MG, 1 DAYS
     Route: 048
     Dates: start: 20100602
  4. CASODEX [Concomitant]
     Dosage: 80 MG, 1 DAYS
     Route: 048
  5. TSUMURA RIKKUNSHI-TO [Concomitant]
     Dosage: 7.5 G, 1 DAYS
     Route: 048
  6. PROSEXOL [Concomitant]
     Dosage: 1.5 MG, 1 DAYS
     Route: 048

REACTIONS (1)
  - Prostate cancer [Fatal]
